FAERS Safety Report 18690310 (Version 1)
Quarter: 2021Q1

REPORT INFORMATION
  Report Type: Report from Study
  Country: None (occurrence: US)
  Receive Date: 20210101
  Receipt Date: 20210101
  Transmission Date: 20210419
  Serious: Yes (Death, Other)
  Sender: FDA-Public Use
  Company Number: US-ABBVIE-20K-163-3711543-00

PATIENT
  Age: 85 Year
  Sex: Male

DRUGS (1)
  1. VENCLEXTA [Suspect]
     Active Substance: VENETOCLAX
     Indication: ACUTE MYELOID LEUKAEMIA
     Route: 048
     Dates: start: 20201126, end: 2020

REACTIONS (4)
  - Death [Fatal]
  - General physical health deterioration [Unknown]
  - Adverse drug reaction [Unknown]
  - Hospice care [Unknown]

NARRATIVE: CASE EVENT DATE: 2020
